FAERS Safety Report 13442376 (Version 2)
Quarter: 2017Q2

REPORT INFORMATION
  Report Type: Spontaneous
  Country: US (occurrence: US)
  Receive Date: 20170413
  Receipt Date: 20170426
  Transmission Date: 20170830
  Serious: Yes (Other)
  Sender: FDA-Public Use
  Company Number: US-BAYER-2017-071060

PATIENT
  Age: 58 Year
  Sex: Female
  Weight: 49.44 kg

DRUGS (1)
  1. MIRALAX [Suspect]
     Active Substance: POLYETHYLENE GLYCOL 3350
     Indication: GASTROINTESTINAL DISORDER
     Dosage: 4 DF, QD
     Route: 048
     Dates: start: 2016, end: 20170411

REACTIONS (2)
  - Drug use disorder [Unknown]
  - Product use issue [None]

NARRATIVE: CASE EVENT DATE: 2016
